FAERS Safety Report 8145432-3 (Version None)
Quarter: 2012Q1

REPORT INFORMATION
  Report Type: 
  Country: None (occurrence: None)
  Receive Date: 20120217
  Receipt Date: 20120207
  Transmission Date: 20120608
  Serious: Yes (Other)
  Sender: FDA-Public Use
  Company Number: US-ABBOTT-12P-163-0902117-00

PATIENT
  Sex: Male

DRUGS (2)
  1. HUMIRA [Suspect]
     Indication: CROHN'S DISEASE
     Route: 058
     Dates: start: 20111201, end: 20111201
  2. HUMIRA [Suspect]
     Route: 058
     Dates: start: 20120101, end: 20120101

REACTIONS (2)
  - JOINT RANGE OF MOTION DECREASED [None]
  - ARTHRALGIA [None]
